FAERS Safety Report 6834709-7 (Version None)
Quarter: 2010Q3

REPORT INFORMATION
  Report Type: 
  Country: None (occurrence: None)
  Receive Date: 20100712
  Receipt Date: 20070425
  Transmission Date: 20110219
  Serious: Yes (Other)
  Sender: FDA-Public Use
  Company Number: US-PFIZER INC-2007034814

PATIENT
  Sex: Female
  Weight: 55.454 kg

DRUGS (1)
  1. CHANTIX [Suspect]
     Indication: SMOKING CESSATION THERAPY
     Dates: start: 20070422, end: 20070425

REACTIONS (5)
  - BLOOD PRESSURE INCREASED [None]
  - DIZZINESS [None]
  - HEADACHE [None]
  - PRESYNCOPE [None]
  - SINUS BRADYCARDIA [None]
